FAERS Safety Report 6136667-X (Version None)
Quarter: 2009Q1

REPORT INFORMATION
  Report Type: 
  Country: None (occurrence: None)
  Receive Date: 20090330
  Receipt Date: 20090324
  Transmission Date: 20090719
  Serious: Yes (Hospitalization)
  Sender: FDA-Public Use
  Company Number: B0567332A

PATIENT
  Sex: Female

DRUGS (1)
  1. ZANTAC [Suspect]
     Dosage: 75MG PER DAY
     Route: 048
     Dates: start: 20090306, end: 20090307

REACTIONS (4)
  - GENERAL PHYSICAL HEALTH DETERIORATION [None]
  - HYPERHIDROSIS [None]
  - PRURITUS [None]
  - RASH GENERALISED [None]
